FAERS Safety Report 13609629 (Version 1)
Quarter: 2017Q2

REPORT INFORMATION
  Report Type: Spontaneous
  Country: US (occurrence: US)
  Receive Date: 20170602
  Receipt Date: 20170602
  Transmission Date: 20170830
  Serious: No
  Sender: FDA-Public Use
  Company Number: US-PFIZER INC-3203479

PATIENT
  Age: 86 Year
  Sex: Male

DRUGS (3)
  1. MIDAZOLAM [Suspect]
     Active Substance: MIDAZOLAM HYDROCHLORIDE
     Indication: SPINAL DISORDER
     Dosage: ONCE IN EACH 3 MONTHS
     Route: 065
  2. BETAMETHASONE SODIUM PHOSPH + BETAMETHASONE A [Suspect]
     Active Substance: BETAMETHASONE ACETATE\BETAMETHASONE SODIUM PHOSPHATE
     Indication: SPINAL DISORDER
     Dosage: UNK
     Route: 065
  3. ENZALUTAMIDE [Suspect]
     Active Substance: ENZALUTAMIDE
     Indication: PROSTATE CANCER
     Dosage: 160 MG, FREQ: 1 DAY; INTERVAL: 1.
     Route: 065
     Dates: start: 20150101

REACTIONS (4)
  - Spinal disorder [Unknown]
  - Headache [Recovering/Resolving]
  - Nocturia [Unknown]
  - Abnormal dreams [Unknown]
